FAERS Safety Report 5085929-6 (Version None)
Quarter: 2006Q3

REPORT INFORMATION
  Report Type: 
  Country: None (occurrence: None)
  Receive Date: 20060817
  Receipt Date: 20060803
  Transmission Date: 20061208
  Serious: Yes (Hospitalization, Other)
  Sender: FDA-Public Use
  Company Number: 2006078152

PATIENT
  Age: 70 Year
  Sex: Male
  Weight: 83 kg

DRUGS (8)
  1. ATORVASTATIN CALCIUM [Suspect]
     Indication: CORONARY ARTERY DISEASE
     Dosage: 20 M G (1 IN 1 D), ORAL
     Route: 048
     Dates: start: 20050926, end: 20060704
  2. PERINDOPRIL ERBUMINE [Concomitant]
  3. ASPIRIN [Concomitant]
  4. GLICLAZIDE (GLICLAZIDE) [Concomitant]
  5. METFORMIN [Concomitant]
  6. AMOXICILLIN [Concomitant]
  7. BENZYLPENICILLIN (BENZYLPENICILLIN) [Concomitant]
  8. DOXYCYCLINE [Concomitant]

REACTIONS (13)
  - ALVEOLITIS FIBROSING [None]
  - BACTERIAL INFECTION [None]
  - CYANOSIS [None]
  - DILATATION ATRIAL [None]
  - HYPOKALAEMIA [None]
  - INTERSTITIAL LUNG DISEASE [None]
  - LYMPHADENOPATHY MEDIASTINAL [None]
  - LYMPHOMA [None]
  - METASTATIC NEOPLASM [None]
  - PNEUMONIA [None]
  - PULMONARY HYPERTENSION [None]
  - RESPIRATORY TRACT INFECTION [None]
  - VENTRICULAR HYPERTROPHY [None]
